FAERS Safety Report 12248263 (Version 1)
Quarter: 2016Q2

REPORT INFORMATION
  Report Type: Spontaneous
  Country: US (occurrence: None)
  Receive Date: 20160407
  Receipt Date: 20160407
  Transmission Date: 20160815
  Serious: Yes (Other)
  Sender: FDA-Public Use
  Company Number: None

PATIENT
  Age: 45 Year
  Sex: Female
  Weight: 49.9 kg

DRUGS (1)
  1. LEVETIRACETAM. [Suspect]
     Active Substance: LEVETIRACETAM
     Indication: SEIZURE
     Route: 048
     Dates: start: 20150122, end: 20160101

REACTIONS (20)
  - Memory impairment [None]
  - Tinnitus [None]
  - Vision blurred [None]
  - Amenorrhoea [None]
  - Vertigo [None]
  - Feeling abnormal [None]
  - Somnolence [None]
  - Panic attack [None]
  - Therapy change [None]
  - Dizziness [None]
  - Lethargy [None]
  - Musculoskeletal stiffness [None]
  - Uterine polyp [None]
  - Asthenia [None]
  - Disturbance in attention [None]
  - Skin burning sensation [None]
  - Decreased appetite [None]
  - Headache [None]
  - Arthralgia [None]
  - Depression [None]

NARRATIVE: CASE EVENT DATE: 20150930
